FAERS Safety Report 6721805-8 (Version None)
Quarter: 2010Q2

REPORT INFORMATION
  Report Type: 
  Country: None (occurrence: None)
  Receive Date: 20100512
  Receipt Date: 20100505
  Transmission Date: 20101027
  Serious: Yes (Death)
  Sender: FDA-Public Use
  Company Number: US-ROCHE-701957

PATIENT
  Sex: Male

DRUGS (9)
  1. BEVACIZUMAB [Suspect]
     Route: 065
     Dates: start: 20100413, end: 20100417
  2. EVEROLIMUS [Suspect]
     Route: 065
     Dates: start: 20100413, end: 20100417
  3. LBH589 [Suspect]
     Dosage: FREQUENCY:   10 MG ON TUESDAY, THURSDAY AND SATURDAY
     Route: 065
     Dates: start: 20100413, end: 20100417
  4. ASPIRIN [Concomitant]
  5. PRILOSEC [Concomitant]
  6. TUSSIREX [Concomitant]
  7. MUCINEX [Concomitant]
  8. HYDROCODONE BITARTRATE [Concomitant]
  9. LISINOPRIL [Concomitant]

REACTIONS (1)
  - DISEASE PROGRESSION [None]
